FAERS Safety Report 11193206 (Version 5)
Quarter: 2015Q3

REPORT INFORMATION
  Report Type: Spontaneous
  Country: US (occurrence: US)
  Receive Date: 20150616
  Receipt Date: 20150911
  Transmission Date: 20151125
  Serious: Yes (Life-Threatening, Hospitalization, Other)
  Sender: FDA-Public Use
  Company Number: US-009507513-1506USA004763

PATIENT
  Age: 44 Year
  Sex: Female
  Weight: 51.7 kg

DRUGS (1)
  1. NEXPLANON [Suspect]
     Active Substance: ETONOGESTREL
     Indication: CONTRACEPTION
     Dosage: 1 ROD EVERY 3 YEARS
     Route: 059
     Dates: start: 20131017, end: 20150813

REACTIONS (5)
  - Pneumonia [Not Recovered/Not Resolved]
  - Menstruation irregular [Unknown]
  - Pulmonary embolism [Not Recovered/Not Resolved]
  - Metrorrhagia [Unknown]
  - Contusion [Unknown]

NARRATIVE: CASE EVENT DATE: 201407
